FAERS Safety Report 18127206 (Version 2)
Quarter: 2020Q3

REPORT INFORMATION
  Report Type: Spontaneous
  Country: PT (occurrence: PT)
  Receive Date: 20200810
  Receipt Date: 20200820
  Transmission Date: 20201103
  Serious: Yes (Other)
  Sender: FDA-Public Use
  Company Number: PT-AUROBINDO-AUR-APL-2020-038299

PATIENT
  Age: 66 Year
  Sex: Female

DRUGS (1)
  1. RISPERIDONE FILM?COATED TABLETS [Suspect]
     Active Substance: RISPERIDONE
     Indication: PSYCHOTIC DISORDER
     Dosage: INCREASED TO 9 MG PER DAY
     Route: 048
     Dates: start: 20200525, end: 20200717

REACTIONS (1)
  - Therapeutic product ineffective [Recovered/Resolved]

NARRATIVE: CASE EVENT DATE: 20200525
